FAERS Safety Report 6385242-0 (Version None)
Quarter: 2009Q4

REPORT INFORMATION
  Report Type: 
  Country: None (occurrence: None)
  Receive Date: 20091002
  Receipt Date: 20081030
  Transmission Date: 20100525
  Serious: Yes (Other)
  Sender: FDA-Public Use
  Company Number: US-ASTRAZENECA-2005UW07512

PATIENT
  Age: 75 Year
  Sex: Female
  Weight: 74.4 kg

DRUGS (3)
  1. ARIMIDEX [Suspect]
     Indication: BREAST CANCER
     Route: 048
     Dates: start: 20040301
  2. CALCIUM [Concomitant]
  3. UNSPECIFIED VITAMINS [Concomitant]

REACTIONS (10)
  - ALOPECIA [None]
  - ARTHRALGIA [None]
  - BONE PAIN [None]
  - EXOSTOSIS [None]
  - INSOMNIA [None]
  - JOINT STIFFNESS [None]
  - JOINT SWELLING [None]
  - NAIL BED INFLAMMATION [None]
  - SLUGGISHNESS [None]
  - WEIGHT INCREASED [None]
